FAERS Safety Report 9031472 (Version 1)
Quarter: 2013Q1

REPORT INFORMATION
  Report Type: Spontaneous
  Country: CA (occurrence: CA)
  Receive Date: 20130124
  Receipt Date: 20130124
  Transmission Date: 20140127
  Serious: Yes (Other)
  Sender: FDA-Public Use
  Company Number: CA-ROCHE-1183161

PATIENT
  Sex: Male
  Weight: 88 kg

DRUGS (4)
  1. RITUXIMAB [Suspect]
     Indication: PRODUCT USED FOR UNKNOWN INDICATION
     Route: 042
  2. BENADRYL [Concomitant]
     Route: 048
  3. HYDROCORTISONE [Concomitant]
     Route: 042
  4. TYLENOL [Concomitant]
     Route: 048

REACTIONS (3)
  - Chills [Not Recovered/Not Resolved]
  - Cough [Not Recovered/Not Resolved]
  - Tremor [Not Recovered/Not Resolved]
